FAERS Safety Report 6517135-X (Version None)
Quarter: 2009Q4

REPORT INFORMATION
  Report Type: 
  Country: None (occurrence: None)
  Receive Date: 20091223
  Receipt Date: 20091215
  Transmission Date: 20100525
  Serious: Yes (Other)
  Sender: FDA-Public Use
  Company Number: GB-ELI_LILLY_AND_COMPANY-GB200912003594

PATIENT
  Age: 18 Year
  Sex: Female

DRUGS (2)
  1. ZYPREXA [Suspect]
     Indication: PSYCHOTIC DISORDER
     Dosage: 2.5 MG, UNK
     Route: 048
     Dates: start: 20071012, end: 20071206
  2. REMERON [Concomitant]
     Indication: DEPRESSION
     Dosage: 15 MG, 2/D
     Route: 065
     Dates: start: 20071012, end: 20071211

REACTIONS (4)
  - ABDOMINAL DISTENSION [None]
  - AMENORRHOEA [None]
  - LOCALISED OEDEMA [None]
  - NEPHROTIC SYNDROME [None]
